FAERS Safety Report 21692750 (Version 1)
Quarter: 2022Q4

REPORT INFORMATION
  Report Type: Spontaneous
  Country: KW (occurrence: KW)
  Receive Date: 20221207
  Receipt Date: 20221207
  Transmission Date: 20230113
  Serious: Yes (Death)
  Sender: FDA-Public Use
  Company Number: KW-SA-SAC20221205000657

PATIENT
  Age: 4 Month

DRUGS (6)
  1. RIFAMPIN [Suspect]
     Active Substance: RIFAMPIN
     Indication: Combined immunodeficiency
  2. LEVOFLOXACIN [Suspect]
     Active Substance: LEVOFLOXACIN
     Indication: Combined immunodeficiency
  3. ISONIAZID [Concomitant]
     Active Substance: ISONIAZID
  4. ETHAMBUTOL [Concomitant]
     Active Substance: ETHAMBUTOL HYDROCHLORIDE
  5. PYRAZINAMIDE [Concomitant]
     Active Substance: PYRAZINAMIDE
  6. AMIKACIN [Concomitant]
     Active Substance: AMIKACIN

REACTIONS (1)
  - Infection [Fatal]
